FAERS Safety Report 9056541 (Version 1)
Quarter: 2013Q1

REPORT INFORMATION
  Report Type: Spontaneous
  Country: FR (occurrence: FR)
  Receive Date: 20130204
  Receipt Date: 20130204
  Transmission Date: 20140127
  Serious: Yes (Life-Threatening)
  Sender: FDA-Public Use
  Company Number: FR-VIIV HEALTHCARE LIMITED-B0861508A

PATIENT
  Age: 0 None
  Sex: Male
  Weight: 3.7 kg

DRUGS (4)
  1. RETROVIR [Suspect]
     Indication: ANTIVIRAL PROPHYLAXIS
     Dosage: 3MGK TWICE PER DAY
     Route: 042
     Dates: start: 20120907, end: 20120908
  2. RETROVIR [Suspect]
     Indication: ANTIVIRAL PROPHYLAXIS
     Route: 064
     Dates: start: 20120906, end: 20120906
  3. RETROVIR [Concomitant]
     Route: 064
  4. VITAMIN K [Concomitant]
     Dates: start: 201209

REACTIONS (14)
  - Anaemia [Recovering/Resolving]
  - Vomiting [Recovered/Resolved]
  - Abdominal distension [Recovered/Resolved]
  - Abdominal tenderness [Recovered/Resolved]
  - X-ray gastrointestinal tract abnormal [Recovered/Resolved]
  - Hyperlactacidaemia [Recovered/Resolved]
  - Petechiae [Unknown]
  - Crying [Unknown]
  - Jaundice [Unknown]
  - Flatulence [Recovered/Resolved]
  - Functional gastrointestinal disorder [Recovered/Resolved]
  - Blood creatine phosphokinase increased [Unknown]
  - Weight decreased [Unknown]
  - Foetal exposure during pregnancy [Unknown]
